FAERS Safety Report 25184520 (Version 1)
Quarter: 2025Q2

REPORT INFORMATION
  Report Type: Spontaneous
  Country: US (occurrence: US)
  Receive Date: 20250410
  Receipt Date: 20250410
  Transmission Date: 20250717
  Serious: Yes (Other)
  Sender: ASTELLAS
  Company Number: US-ASTELLAS-2025-AER-018840

PATIENT
  Age: 40 Year
  Sex: Female

DRUGS (2)
  1. MYRBETRIQ [Suspect]
     Active Substance: MIRABEGRON
     Indication: Bladder obstruction
     Dosage: EXTENDED-RELEASE TABLETS
     Route: 065
     Dates: end: 202503
  2. MIRABEGRON [Suspect]
     Active Substance: MIRABEGRON
     Indication: Bladder obstruction
     Route: 065
     Dates: start: 202503

REACTIONS (3)
  - Bladder obstruction [Unknown]
  - Disease recurrence [Unknown]
  - Off label use [Unknown]
